FAERS Safety Report 26118216 (Version 2)
Quarter: 2025Q4

REPORT INFORMATION
  Report Type: Spontaneous
  Country: KR (occurrence: KR)
  Receive Date: 20251203
  Receipt Date: 20251210
  Transmission Date: 20260118
  Serious: Yes (Other)
  Sender: PFIZER
  Company Number: KR-PFIZER INC-202500233565

PATIENT
  Age: 68 Year
  Sex: Female

DRUGS (1)
  1. CRIZOTINIB [Suspect]
     Active Substance: CRIZOTINIB
     Indication: Non-small cell lung cancer metastatic
     Dosage: UNK

REACTIONS (3)
  - Eye abscess [Recovered/Resolved]
  - Uveitis [Recovered/Resolved]
  - Scleritis [Recovered/Resolved]
